FAERS Safety Report 13737110 (Version 1)
Quarter: 2017Q3

REPORT INFORMATION
  Report Type: Report from Study
  Country: None (occurrence: CL)
  Receive Date: 20170710
  Receipt Date: 20170710
  Transmission Date: 20171127
  Serious: Yes (Hospitalization)
  Sender: FDA-Public Use
  Company Number: CL-ABBVIE-17P-034-2031139-00

PATIENT
  Age: 5 Month
  Sex: Male

DRUGS (5)
  1. PROPANOLOL [Concomitant]
     Active Substance: PROPRANOLOL HYDROCHLORIDE
     Indication: CONGENITAL CARDIOVASCULAR ANOMALY
  2. CAPTOPRIL. [Concomitant]
     Active Substance: CAPTOPRIL
     Indication: CONGENITAL CARDIOVASCULAR ANOMALY
  3. SYNAGIS [Suspect]
     Active Substance: PALIVIZUMAB
     Indication: ANTIVIRAL PROPHYLAXIS
     Route: 030
     Dates: start: 20170605
  4. FUROSEMIDE. [Concomitant]
     Active Substance: FUROSEMIDE
     Indication: CONGENITAL CARDIOVASCULAR ANOMALY
  5. ASPIRIN. [Concomitant]
     Active Substance: ASPIRIN
     Indication: CONGENITAL CARDIOVASCULAR ANOMALY

REACTIONS (1)
  - Nasopharyngitis [Recovering/Resolving]

NARRATIVE: CASE EVENT DATE: 201707
